FAERS Safety Report 5808085-2 (Version None)
Quarter: 2008Q3

REPORT INFORMATION
  Report Type: 
  Country: None (occurrence: None)
  Receive Date: 20080708
  Receipt Date: 20080624
  Transmission Date: 20090109
  Serious: Yes (Life-Threatening)
  Sender: FDA-Public Use
  Company Number: DSJ-2008-04983

PATIENT
  Age: 64 Year
  Sex: Male

DRUGS (3)
  1. OLMESARTAN MEDOXOMIL [Suspect]
     Indication: HYPERTENSION
     Dosage: 40 MG (20 MG, 2 IN 1 D), PER ORAL
     Route: 048
     Dates: start: 20080225, end: 20080323
  2. CARVEDILOL [Concomitant]
     Dosage: 5 MG (2.5 MG, 2 IN 1 D), PER ORAL
     Route: 048
     Dates: start: 20080225, end: 20080323
  3. PARIET (RABEPRAZOLE SODIUM) (TABLET) (RABEPRAZOLE SODIUM) [Suspect]
     Dosage: 10 MG (10 MG,1 IN 1 D), PER ORAL
     Route: 048
     Dates: start: 20080225, end: 20080323

REACTIONS (3)
  - CYTOMEGALOVIRUS ANTIBODY POSITIVE [None]
  - TOXIC EPIDERMAL NECROLYSIS [None]
  - VIRAL INFECTION [None]
